FAERS Safety Report 21204394 (Version 33)
Quarter: 2025Q4

REPORT INFORMATION
  Report Type: Spontaneous
  Country: CA (occurrence: CA)
  Receive Date: 20220812
  Receipt Date: 20251017
  Transmission Date: 20260118
  Serious: Yes (Other)
  Sender: CELLTRION
  Company Number: CA-CELLTRION INC.-2021CA008503

PATIENT

DRUGS (96)
  1. INFLIXIMAB [Suspect]
     Active Substance: INFLIXIMAB
     Indication: Crohn^s disease
     Dosage: 650.0 MILLIGRAM
     Route: 042
  2. INFLIXIMAB [Suspect]
     Active Substance: INFLIXIMAB
     Dosage: 650.0 MILLIGRAM
     Route: 042
  3. INFLIXIMAB [Suspect]
     Active Substance: INFLIXIMAB
     Dosage: 5.0 MG/KG
     Route: 042
  4. INFLIXIMAB [Suspect]
     Active Substance: INFLIXIMAB
     Dosage: 5.0 MG/KG
     Route: 042
  5. INFLIXIMAB [Suspect]
     Active Substance: INFLIXIMAB
     Dosage: 5.0 MG/KG
     Route: 042
  6. INFLIXIMAB [Suspect]
     Active Substance: INFLIXIMAB
     Dosage: 5.0 MG/KG
     Route: 042
  7. INFLIXIMAB [Suspect]
     Active Substance: INFLIXIMAB
     Dosage: 5.0 MG/KG
     Route: 042
  8. INFLIXIMAB [Suspect]
     Active Substance: INFLIXIMAB
     Dosage: 5.0 MG/KG
     Route: 042
  9. INFLIXIMAB [Suspect]
     Active Substance: INFLIXIMAB
     Dosage: 5.0 MG/KG
     Route: 042
  10. INFLIXIMAB [Suspect]
     Active Substance: INFLIXIMAB
     Dosage: 5.0 MG/KG
     Route: 042
  11. INFLIXIMAB [Suspect]
     Active Substance: INFLIXIMAB
     Dosage: 5.0 MG/KG
     Route: 042
  12. INFLIXIMAB [Suspect]
     Active Substance: INFLIXIMAB
     Dosage: 665.0 MILLIGRAM
     Route: 042
  13. INFLIXIMAB [Suspect]
     Active Substance: INFLIXIMAB
     Dosage: 5.0 MG/KG
     Route: 042
  14. INFLIXIMAB [Suspect]
     Active Substance: INFLIXIMAB
     Dosage: 5.0 MG/KG
     Route: 042
  15. INFLIXIMAB [Suspect]
     Active Substance: INFLIXIMAB
     Dosage: 647.0 MILLIGRAM
     Route: 042
  16. INFLIXIMAB [Suspect]
     Active Substance: INFLIXIMAB
     Dosage: 657.5 MILLIGRAM
     Route: 042
  17. INFLIXIMAB [Suspect]
     Active Substance: INFLIXIMAB
     Dosage: 635.0 MILLIGRAM
     Route: 042
  18. INFLIXIMAB [Suspect]
     Active Substance: INFLIXIMAB
     Dosage: 5.0 MG/KG
     Route: 042
  19. INFLIXIMAB [Suspect]
     Active Substance: INFLIXIMAB
     Dosage: 632.0 MILLIGRAM
     Route: 042
  20. INFLIXIMAB [Suspect]
     Active Substance: INFLIXIMAB
     Dosage: 637.5 MILLIGRAM
     Route: 042
  21. INFLIXIMAB [Suspect]
     Active Substance: INFLIXIMAB
     Dosage: 5.0 MG/KG
     Route: 042
  22. INFLIXIMAB [Suspect]
     Active Substance: INFLIXIMAB
     Dosage: 651.0 MILLIGRAM
     Route: 042
  23. INFLIXIMAB [Suspect]
     Active Substance: INFLIXIMAB
     Dosage: 5.0 MG/KG
     Route: 042
  24. INFLIXIMAB [Suspect]
     Active Substance: INFLIXIMAB
     Dosage: 666.0 MILLIGRAM
     Route: 042
  25. INFLIXIMAB [Suspect]
     Active Substance: INFLIXIMAB
     Dosage: 673.5 MILLIGRAM
     Route: 042
  26. INFLIXIMAB [Suspect]
     Active Substance: INFLIXIMAB
     Dosage: 656.0 MILLIGRAM
     Route: 042
  27. INFLIXIMAB [Suspect]
     Active Substance: INFLIXIMAB
     Dosage: 666.0 MILLIGRAM
     Route: 042
  28. INFLIXIMAB [Suspect]
     Active Substance: INFLIXIMAB
     Dosage: 657.5 MILLIGRAM
     Route: 042
  29. INFLIXIMAB [Suspect]
     Active Substance: INFLIXIMAB
     Dosage: 660.0 MILLIGRAM
     Route: 042
  30. INFLIXIMAB [Suspect]
     Active Substance: INFLIXIMAB
     Dosage: 677.0 MILLIGRAM
     Route: 042
  31. INFLIXIMAB [Suspect]
     Active Substance: INFLIXIMAB
     Dosage: 665.0 MILLIGRAM
     Route: 042
  32. INFLIXIMAB [Suspect]
     Active Substance: INFLIXIMAB
     Dosage: 5.0 MG/KG
     Route: 042
  33. INFLIXIMAB [Suspect]
     Active Substance: INFLIXIMAB
     Dosage: 650.0 MILLIGRAM
     Route: 042
  34. INFLIXIMAB [Suspect]
     Active Substance: INFLIXIMAB
     Dosage: 640.0 MILLIGRAM
     Route: 042
  35. INFLIXIMAB [Suspect]
     Active Substance: INFLIXIMAB
     Dosage: 641.0 MILLIGRAM
     Route: 042
  36. INFLIXIMAB [Suspect]
     Active Substance: INFLIXIMAB
     Dosage: 645.0 MILLIGRAM
     Route: 042
  37. INFLIXIMAB [Suspect]
     Active Substance: INFLIXIMAB
     Dosage: 675.0 MILLIGRAM
     Route: 042
  38. INFLIXIMAB [Suspect]
     Active Substance: INFLIXIMAB
     Dosage: 662.0 MILLIGRAM
     Route: 042
  39. INFLIXIMAB [Suspect]
     Active Substance: INFLIXIMAB
     Dosage: 655.0 MILLIGRAM
     Route: 042
  40. INFLIXIMAB [Suspect]
     Active Substance: INFLIXIMAB
     Dosage: 655.0 MILLIGRAM
     Route: 042
  41. INFLIXIMAB [Suspect]
     Active Substance: INFLIXIMAB
     Dosage: 650.0 MILLIGRAM
     Route: 042
  42. INFLIXIMAB [Suspect]
     Active Substance: INFLIXIMAB
     Dosage: 650.0 MILLIGRAM
     Route: 042
  43. INFLIXIMAB [Suspect]
     Active Substance: INFLIXIMAB
     Dosage: 650.0 MILLIGRAM
     Route: 042
  44. INFLIXIMAB [Suspect]
     Active Substance: INFLIXIMAB
     Dosage: 650.0 MILLIGRAM
     Route: 042
  45. INFLIXIMAB [Suspect]
     Active Substance: INFLIXIMAB
     Dosage: 650.0 MILLIGRAM
     Route: 042
  46. INFLECTRA [Suspect]
     Active Substance: INFLIXIMAB-DYYB
     Indication: Crohn^s disease
     Dosage: 650 MG, Q 0, 2 AND 6 WEEKS, THEN EVERY 8 WEEKS
     Route: 042
     Dates: start: 20210408
  47. INFLECTRA [Suspect]
     Active Substance: INFLIXIMAB-DYYB
     Dosage: 650 MG AT 0,2 AND 6 WEEKS, THEN Q 8 WEEKS
     Route: 042
     Dates: start: 20210422
  48. INFLECTRA [Suspect]
     Active Substance: INFLIXIMAB-DYYB
     Dosage: 650 MG AT 0,2 AND 6 WEEKS, THEN Q 8 WEEKS
     Route: 042
     Dates: start: 20210520
  49. INFLECTRA [Suspect]
     Active Substance: INFLIXIMAB-DYYB
     Dosage: 650 MG AT 0,2 AND 6 WEEKS, THEN Q 8 WEEKS
     Route: 042
     Dates: start: 20210715
  50. INFLECTRA [Suspect]
     Active Substance: INFLIXIMAB-DYYB
     Dosage: 650 MG AT 0,2 AND 6 WEEKS, THEN Q 8 WEEKS
     Route: 042
     Dates: start: 20210715
  51. INFLECTRA [Suspect]
     Active Substance: INFLIXIMAB-DYYB
     Dosage: 650 MG AT 0,2 AND 6 WEEKS, THEN Q 8 WEEKS
     Route: 042
     Dates: start: 20210908
  52. INFLECTRA [Suspect]
     Active Substance: INFLIXIMAB-DYYB
     Dosage: 650 MG, Q 0, 2 AND 6 WEEKS, THEN EVERY 8 WEEKS
     Route: 042
     Dates: start: 20211103
  53. INFLECTRA [Suspect]
     Active Substance: INFLIXIMAB-DYYB
     Dosage: 5 MG/KG, AFTER 9 WEEKS (PRESCRIBED EVERY 6 WEEK)
     Route: 042
     Dates: start: 20220105
  54. INFLECTRA [Suspect]
     Active Substance: INFLIXIMAB-DYYB
     Dosage: 5 MG/KG EVERY 6 WEEK
     Route: 042
     Dates: start: 20220216
  55. INFLECTRA [Suspect]
     Active Substance: INFLIXIMAB-DYYB
     Dosage: 5 MG/KG EVERY 6 WEEK
     Route: 042
     Dates: start: 20220330
  56. INFLECTRA [Suspect]
     Active Substance: INFLIXIMAB-DYYB
     Dosage: 5 MG/KG EVERY 6 WEEK
     Route: 042
     Dates: start: 20220622
  57. INFLECTRA [Suspect]
     Active Substance: INFLIXIMAB-DYYB
     Dosage: 5 MG/KG EVERY 6 WEEK
     Route: 042
     Dates: start: 20220802
  58. INFLECTRA [Suspect]
     Active Substance: INFLIXIMAB-DYYB
     Dosage: 5 MG/KG EVERY 6 WEEK
     Route: 042
     Dates: start: 20220914
  59. INFLECTRA [Suspect]
     Active Substance: INFLIXIMAB-DYYB
     Dosage: 5 MG/KG EVERY 6 WEEK
     Route: 042
     Dates: start: 20221026
  60. INFLECTRA [Suspect]
     Active Substance: INFLIXIMAB-DYYB
     Dosage: 5 MG/KG EVERY 6 WEEK
     Route: 042
     Dates: start: 20221205
  61. INFLECTRA [Suspect]
     Active Substance: INFLIXIMAB-DYYB
     Dosage: 5 MG/KG, EVERY 4 WEEKS
     Route: 042
     Dates: start: 20230123, end: 20230123
  62. INFLECTRA [Suspect]
     Active Substance: INFLIXIMAB-DYYB
     Dosage: 665 MG (5 MG/KG), EVERY 4 WEEKS
     Route: 042
     Dates: start: 20230221
  63. INFLECTRA [Suspect]
     Active Substance: INFLIXIMAB-DYYB
     Dosage: 5 MG/KG EVERY 4 WEEKS
     Route: 042
     Dates: start: 20230321
  64. INFLECTRA [Suspect]
     Active Substance: INFLIXIMAB-DYYB
     Dosage: 5 MG/KG EVERY 4 WEEKS
     Route: 042
     Dates: start: 20230420
  65. INFLECTRA [Suspect]
     Active Substance: INFLIXIMAB-DYYB
     Dosage: 647 MG EVERY 4 WEEKS
     Route: 042
     Dates: start: 20230518
  66. INFLECTRA [Suspect]
     Active Substance: INFLIXIMAB-DYYB
     Dosage: 657.5 MG EVERY 4 WEEKS
     Route: 042
     Dates: start: 20230613
  67. INFLECTRA [Suspect]
     Active Substance: INFLIXIMAB-DYYB
     Dosage: 635 MG EVERY 4 WEEKS
     Route: 042
     Dates: start: 20230712
  68. INFLECTRA [Suspect]
     Active Substance: INFLIXIMAB-DYYB
     Dosage: 5 MG/KG EVERY 4 WEEKS
     Route: 042
     Dates: start: 20230717
  69. INFLECTRA [Suspect]
     Active Substance: INFLIXIMAB-DYYB
     Dosage: 632 MG, EVERY 4 WEEKS
     Route: 042
     Dates: start: 20230810
  70. INFLECTRA [Suspect]
     Active Substance: INFLIXIMAB-DYYB
     Dosage: 637.5 MG, EVERY 4 WEEKS
     Route: 042
     Dates: start: 20230906
  71. INFLECTRA [Suspect]
     Active Substance: INFLIXIMAB-DYYB
     Dosage: 5 MG/KG EVERY 4 WEEK
     Route: 042
     Dates: start: 20231003
  72. INFLECTRA [Suspect]
     Active Substance: INFLIXIMAB-DYYB
     Dosage: 651 MG, EVERY 4 WEEKS
     Route: 042
     Dates: start: 20231101
  73. INFLECTRA [Suspect]
     Active Substance: INFLIXIMAB-DYYB
     Dosage: 5 MG/KG EVERY 4 WEEK
     Route: 042
     Dates: start: 20231129
  74. INFLECTRA [Suspect]
     Active Substance: INFLIXIMAB-DYYB
     Dosage: 673.5 MG EVERY 4 WEEK
     Route: 042
     Dates: start: 20231228
  75. INFLECTRA [Suspect]
     Active Substance: INFLIXIMAB-DYYB
     Dosage: 656 MG, EVERY 4 WEEKS
     Route: 042
     Dates: start: 20240125
  76. INFLECTRA [Suspect]
     Active Substance: INFLIXIMAB-DYYB
     Dosage: 666 MG, EVERY 4 WEEKS
     Route: 042
     Dates: start: 20240222
  77. INFLECTRA [Suspect]
     Active Substance: INFLIXIMAB-DYYB
     Dosage: 666 MG, EVERY 4 WEEKS
     Route: 042
     Dates: start: 20240321
  78. INFLECTRA [Suspect]
     Active Substance: INFLIXIMAB-DYYB
     Dosage: 657.5 MG, EVERY 4 WEEKS
     Route: 042
     Dates: start: 20240418
  79. INFLECTRA [Suspect]
     Active Substance: INFLIXIMAB-DYYB
     Dosage: 660 MG (5 MG/ KG), AFTER 7 WEEKS AND 4 DAYS (PRESCRIBED EVERY 4 WEEKS)
     Route: 042
     Dates: start: 20240610
  80. INFLECTRA [Suspect]
     Active Substance: INFLIXIMAB-DYYB
     Dosage: 677 MG (5 MG/KG) AFTER 4 WEEKS AND 3 DAYS (PRESCRIBED EVERY 4 WEEKS)
     Route: 042
     Dates: start: 20240711
  81. INFLECTRA [Suspect]
     Active Substance: INFLIXIMAB-DYYB
     Dosage: 665 MG (5 MG/KG), EVERY 4 WEEKS
     Route: 042
     Dates: start: 20240808
  82. INFLECTRA [Suspect]
     Active Substance: INFLIXIMAB-DYYB
     Dosage: 5 MG/KG, EVERY 4 WEEK
     Route: 042
     Dates: start: 20240905
  83. INFLECTRA [Suspect]
     Active Substance: INFLIXIMAB-DYYB
     Dosage: 650 MG (5 MG/KG), EVERY 4 WEEKS
     Route: 042
     Dates: start: 20241003
  84. INFLECTRA [Suspect]
     Active Substance: INFLIXIMAB-DYYB
     Dosage: 640 MG (5 MG/KG), EVERY 4 WEEK
     Route: 042
     Dates: start: 20241031
  85. INFLECTRA [Suspect]
     Active Substance: INFLIXIMAB-DYYB
     Dosage: 641 MG, 3 WEEKS 4 DAYS (5 MG/KG, EVERY 4 WEEKS)
     Route: 042
     Dates: start: 20241125
  86. INFLECTRA [Suspect]
     Active Substance: INFLIXIMAB-DYYB
     Dosage: 645 MG (5 MG/KG, EVERY 4 WEEKS)
     Route: 042
     Dates: start: 20241227
  87. INFLECTRA [Suspect]
     Active Substance: INFLIXIMAB-DYYB
     Dosage: 662 MG (5MG/KG), EVERY 4 WEEKS
     Route: 042
     Dates: start: 20250124
  88. INFLECTRA [Suspect]
     Active Substance: INFLIXIMAB-DYYB
     Dosage: 655 MG, 4 WEEKS AND 3 DAYS (5 MG/KG, EVERY 4 WEEKS)
     Route: 042
     Dates: start: 20250224
  89. INFLECTRA [Suspect]
     Active Substance: INFLIXIMAB-DYYB
     Dosage: 655 MG, AFTER 3 WEEKS AND 4 DAYS (EVERY 4 WEEKS)
     Route: 042
     Dates: start: 20250321
  90. INFLECTRA [Suspect]
     Active Substance: INFLIXIMAB-DYYB
     Dosage: 675 MG, EVERY 4 WEEKS (5 MG/KG, EVERY 4 WEEKS)
     Route: 042
     Dates: start: 20250417
  91. ACETAMINOPHEN [Concomitant]
     Active Substance: ACETAMINOPHEN
     Indication: Premedication
     Dosage: UNK
     Dates: start: 20230123, end: 20230123
  92. DIPHENHYDRAMINE [Concomitant]
     Active Substance: DIPHENHYDRAMINE
     Indication: Premedication
     Dosage: UNK
     Dates: start: 20230123, end: 20230123
  93. CELEBREX [Concomitant]
     Active Substance: CELECOXIB
     Dosage: 1 DF, DOSAGE INFO: UNKNOWN
     Route: 065
  94. METHOTREXATE [Concomitant]
     Active Substance: METHOTREXATE
     Indication: Rheumatoid arthritis
     Dosage: 1 DF, 1 PILL DAILY WITH 6 PILLS ON THE 7TH DAY EACH WEEK
     Route: 048
     Dates: start: 2021
  95. METHOTREXATE [Concomitant]
     Active Substance: METHOTREXATE
     Indication: Rheumatoid arthritis
     Dosage: 1.0 DOSAGE FORM
     Route: 048
  96. SOLU-CORTEF [Concomitant]
     Active Substance: HYDROCORTISONE SODIUM SUCCINATE
     Indication: Premedication
     Dosage: UNK/ POWDER FOR SOLUTION INTRAMUSCULAR
     Dates: start: 20230123, end: 20230123

REACTIONS (16)
  - Condition aggravated [Not Recovered/Not Resolved]
  - Arthropathy [Not Recovered/Not Resolved]
  - Uveitis [Not Recovered/Not Resolved]
  - Groin pain [Not Recovered/Not Resolved]
  - Faecal calprotectin abnormal [Not Recovered/Not Resolved]
  - Erythema nodosum [Not Recovered/Not Resolved]
  - Blood pressure increased [Not Recovered/Not Resolved]
  - Abdominal pain lower [Not Recovered/Not Resolved]
  - Pain [Not Recovered/Not Resolved]
  - Back pain [Not Recovered/Not Resolved]
  - Arthralgia [Not Recovered/Not Resolved]
  - Headache [Not Recovered/Not Resolved]
  - Off label use [Not Recovered/Not Resolved]
  - Inappropriate schedule of product administration [Not Recovered/Not Resolved]
  - Underdose [Unknown]
  - Overdose [Unknown]

NARRATIVE: CASE EVENT DATE: 20210520
